FAERS Safety Report 23099626 (Version 2)
Quarter: 2023Q4

REPORT INFORMATION
  Report Type: Report from Study
  Country: CA (occurrence: CA)
  Receive Date: 20231024
  Receipt Date: 20231124
  Transmission Date: 20240110
  Serious: Yes (Other)
  Sender: FDA-Public Use
  Company Number: CA-BAYER-2023A150338

PATIENT
  Sex: Male

DRUGS (1)
  1. EYLEA [Suspect]
     Active Substance: AFLIBERCEPT
     Indication: Retinal vein occlusion
     Dosage: 2MG/0.05ML; SOLUTION FOR INJECTION; STRENGTH: 40 MG/ML
     Dates: start: 20231017

REACTIONS (2)
  - Intra-ocular injection complication [Unknown]
  - Vision blurred [Unknown]
